FAERS Safety Report 23392808 (Version 2)
Quarter: 2025Q2

REPORT INFORMATION
  Report Type: Spontaneous
  Country: PL (occurrence: PL)
  Receive Date: 20240111
  Receipt Date: 20250610
  Transmission Date: 20250717
  Serious: Yes (Other)
  Sender: TEVA
  Company Number: PL-TEVA-VS-3141732

PATIENT
  Age: 61 Year
  Sex: Male

DRUGS (1)
  1. CARBAMAZEPINE [Suspect]
     Active Substance: CARBAMAZEPINE
     Indication: Product used for unknown indication
     Route: 065
     Dates: end: 2015

REACTIONS (1)
  - Dermatitis exfoliative generalised [Recovered/Resolved]
